FAERS Safety Report 6805322-2 (Version None)
Quarter: 2010Q2

REPORT INFORMATION
  Report Type: 
  Country: None (occurrence: None)
  Receive Date: 20100628
  Receipt Date: 20100628
  Transmission Date: 20101027
  Serious: No
  Sender: FDA-Public Use
  Company Number: None

PATIENT
  Age: 46 Year
  Weight: 140.6151 kg

DRUGS (1)
  1. ZICAM ORAL MIST MINT FLAVOR ZINCUM ACETICUM 2X, ZINCUM  MATRIXX INITIA [Suspect]
     Indication: THROAT IRRITATION
     Dosage: SPRAY FOUR TIMES IN MOUTH EVERY THREE HOURS PO
     Route: 048
     Dates: start: 20100605, end: 20100606

REACTIONS (2)
  - AGEUSIA [None]
  - ANOSMIA [None]
